FAERS Safety Report 8846189 (Version 1)
Quarter: 2012Q4

REPORT INFORMATION
  Report Type: 
  Country: US (occurrence: US)
  Receive Date: 20121017
  Receipt Date: 20121017
  Transmission Date: 20130627
  Serious: Yes (Other)
  Sender: FDA-Public Use
  Company Number: US-JNJFOC-20121004403

PATIENT
  Age: 61 None
  Sex: Female
  Weight: 111.59 kg

DRUGS (5)
  1. UNSPECIFIED FENTANYL TRANSDERMAL SYSTEM [Suspect]
     Indication: BACK PAIN
     Route: 062
     Dates: start: 2012, end: 20121001
  2. SANDOZ FENTANYL TRANSDERMAL SYSTEM [Suspect]
     Indication: BACK PAIN
     Dosage: NDC 0781-7240-55
     Route: 062
     Dates: start: 20121001
  3. PROZAC [Concomitant]
     Indication: BIPOLAR DISORDER
     Route: 048
  4. NEXIUM [Concomitant]
     Indication: DYSPEPSIA
     Route: 048
  5. CALCIUM [Concomitant]
     Indication: BONE DISORDER
     Route: 048
     Dates: start: 2010

REACTIONS (7)
  - Weight decreased [Not Recovered/Not Resolved]
  - Inappropriate schedule of drug administration [Recovered/Resolved]
  - Heart rate increased [Recovered/Resolved]
  - Muscle spasms [Recovered/Resolved]
  - Pain [Recovered/Resolved]
  - Product quality issue [Unknown]
  - Wrong technique in drug usage process [Recovered/Resolved]
